FAERS Safety Report 19959235 (Version 1)
Quarter: 2021Q4

REPORT INFORMATION
  Report Type: Spontaneous
  Country: US (occurrence: US)
  Receive Date: 20211013
  Receipt Date: 20211013
  Transmission Date: 20220303
  Serious: Yes (Hospitalization)
  Sender: FDA-Public Use
  Company Number: None

PATIENT
  Sex: Male

DRUGS (1)
  1. DROXIDOPA [Suspect]
     Active Substance: DROXIDOPA
     Indication: Parkinson^s disease
     Route: 048
     Dates: start: 202106

REACTIONS (8)
  - Toe amputation [None]
  - Sarcoidosis [None]
  - Fracture [None]
  - Gastric ulcer [None]
  - Haemoglobin decreased [None]
  - Blood pressure decreased [None]
  - Dizziness [None]
  - Therapeutic product effect decreased [None]
